FAERS Safety Report 16329499 (Version 2)
Quarter: 2019Q4

REPORT INFORMATION
  Report Type: Report from Study
  Country: US (occurrence: US)
  Receive Date: 20190520
  Receipt Date: 20191213
  Transmission Date: 20200122
  Serious: Yes (Death)
  Sender: FDA-Public Use
  Company Number: US-ROCHE-2321049

PATIENT
  Age: 70 Year
  Sex: Female
  Weight: 83.46 kg

DRUGS (1)
  1. XOLAIR [Suspect]
     Active Substance: OMALIZUMAB
     Indication: ASTHMA
     Route: 058
     Dates: start: 20180629

REACTIONS (1)
  - Death [Fatal]

NARRATIVE: CASE EVENT DATE: 20190511
